FAERS Safety Report 13621447 (Version 1)
Quarter: 2017Q2

REPORT INFORMATION
  Report Type: Spontaneous
  Country: IL (occurrence: IL)
  Receive Date: 20170607
  Receipt Date: 20170607
  Transmission Date: 20170830
  Serious: Yes (Other)
  Sender: FDA-Public Use
  Company Number: IL-SHIRE-IL201712421

PATIENT
  Age: 40 Year
  Sex: Male

DRUGS (1)
  1. VPRIV [Suspect]
     Active Substance: VELAGLUCERASE ALFA
     Indication: GAUCHER^S DISEASE
     Dosage: 2400 IU (6 VAILS) ALTERNATING 2000IU (5 VIALS) , 1X/2WKS
     Route: 041
     Dates: start: 2007

REACTIONS (2)
  - Back pain [Unknown]
  - Intervertebral disc protrusion [Unknown]

NARRATIVE: CASE EVENT DATE: 201705
